FAERS Safety Report 5145615-0 (Version None)
Quarter: 2006Q4

REPORT INFORMATION
  Report Type: 
  Country: None (occurrence: None)
  Receive Date: 20061102
  Receipt Date: 20061017
  Transmission Date: 20070319
  Serious: Yes (Hospitalization)
  Sender: FDA-Public Use
  Company Number: DSA_28866_2006

PATIENT
  Age: 65 Year
  Sex: Male

DRUGS (11)
  1. ENALAPRIL MALEATE [Suspect]
     Indication: CARDIAC FAILURE CONGESTIVE
     Dosage: 10 MG BID PO
     Route: 048
     Dates: end: 20060731
  2. ENALAPRIL MALEATE [Suspect]
     Indication: HYPERTENSION
     Dosage: 10 MG BID PO
     Route: 048
     Dates: end: 20060731
  3. SPIRONOLACTONE [Suspect]
     Indication: CARDIAC FAILURE CONGESTIVE
     Dosage: 50 MG Q DAY PO
     Route: 048
     Dates: start: 20060701, end: 20060731
  4. SPIRONOLACTONE [Suspect]
     Indication: HYPERTENSION
     Dosage: 50 MG Q DAY PO
     Route: 048
     Dates: start: 20060701, end: 20060731
  5. FUROSEMIDE [Suspect]
     Indication: CARDIAC FAILURE CONGESTIVE
     Dosage: 20 MG Q DAY PO
     Route: 048
  6. FUROSEMIDE [Suspect]
     Indication: HYPERTENSION
     Dosage: 20 MG Q DAY PO
     Route: 048
  7. BISOPROLOL FUMARATE [Concomitant]
  8. BUFLOMEDIL [Concomitant]
  9. ESOMEPRAZOLE MAGNESIUM [Concomitant]
  10. FORMOTEROL FUMARATE [Concomitant]
  11. GLICLAZIDE [Concomitant]

REACTIONS (5)
  - BLOOD PH DECREASED [None]
  - CREATININE RENAL CLEARANCE DECREASED [None]
  - DEHYDRATION [None]
  - HYPERKALAEMIA [None]
  - RENAL FAILURE ACUTE [None]
